FAERS Safety Report 14008852 (Version 1)
Quarter: 2017Q3

REPORT INFORMATION
  Report Type: Spontaneous
  Country: IT (occurrence: IT)
  Receive Date: 20170925
  Receipt Date: 20170925
  Transmission Date: 20171128
  Serious: Yes (Other)
  Sender: FDA-Public Use
  Company Number: IT-PFIZER INC-2017402000

PATIENT
  Age: 47 Year
  Sex: Male
  Weight: 75 kg

DRUGS (7)
  1. PANTORC [Concomitant]
     Active Substance: PANTOPRAZOLE SODIUM
     Indication: GASTROINTESTINAL DISORDER
     Dosage: 40 MG, UNK
     Route: 048
     Dates: start: 20170802, end: 20170914
  2. VFEND [Suspect]
     Active Substance: VORICONAZOLE
     Dosage: 200 G, 2X/DAY
     Route: 042
     Dates: start: 20170825, end: 20170829
  3. VFEND [Suspect]
     Active Substance: VORICONAZOLE
     Dosage: 600 G, DAILY
     Route: 042
     Dates: start: 20170830, end: 20170905
  4. VFEND [Suspect]
     Active Substance: VORICONAZOLE
     Dosage: 200 G, 2X/DAY
     Route: 042
     Dates: start: 20170906
  5. NORVASC [Concomitant]
     Active Substance: AMLODIPINE BESYLATE
     Indication: HYPERTENSION
     Dosage: 10 MG, UNK
     Route: 048
     Dates: start: 20170721, end: 20170914
  6. VFEND [Suspect]
     Active Substance: VORICONAZOLE
     Indication: ANTIBIOTIC THERAPY
     Dosage: 400 G, 2X/DAY
     Route: 042
     Dates: start: 20170822, end: 20170824
  7. CLEXANE [Concomitant]
     Active Substance: ENOXAPARIN SODIUM
     Indication: THROMBOSIS PROPHYLAXIS
     Dosage: 4000 IU, UNK
     Route: 042
     Dates: start: 20170721, end: 20170914

REACTIONS (2)
  - Blindness transient [Recovered/Resolved]
  - Visual impairment [Recovered/Resolved]

NARRATIVE: CASE EVENT DATE: 20170826
